FAERS Safety Report 9116049 (Version 1)
Quarter: 2013Q1

REPORT INFORMATION
  Report Type: Spontaneous
  Country: BR (occurrence: BR)
  Receive Date: 20130225
  Receipt Date: 20130225
  Transmission Date: 20140127
  Serious: Yes (Other)
  Sender: FDA-Public Use
  Company Number: PHHY2013BR018251

PATIENT
  Sex: Female

DRUGS (2)
  1. DIOVAN [Suspect]
     Indication: HYPERTENSION
     Dosage: 1 DF DAILY
     Route: 048
  2. RASILEZ [Concomitant]
     Dosage: 1 DF DAILY

REACTIONS (2)
  - Diabetes mellitus [Recovering/Resolving]
  - Intervertebral disc protrusion [Not Recovered/Not Resolved]
